FAERS Safety Report 4799750-7 (Version None)
Quarter: 2005Q4

REPORT INFORMATION
  Report Type: 
  Country: None (occurrence: None)
  Receive Date: 20051011
  Receipt Date: 20051011
  Transmission Date: 20060501
  Serious: Yes (Hospitalization)
  Sender: FDA-Public Use
  Company Number: None

PATIENT
  Sex: Male
  Weight: 90.7194 kg

DRUGS (5)
  1. GEODON [Suspect]
     Indication: MENTAL RETARDATION SEVERITY UNSPECIFIED
     Dosage: PO  (THERAPY DATES: PRIOR TO ADMISSION)
     Route: 048
  2. ZYPREXA [Concomitant]
  3. BENTYL [Concomitant]
  4. PREVACID [Concomitant]
  5. FIBER [Concomitant]

REACTIONS (2)
  - HYPERSOMNIA [None]
  - LETHARGY [None]
